FAERS Safety Report 25603105 (Version 1)
Quarter: 2025Q3

REPORT INFORMATION
  Report Type: Spontaneous
  Country: EU (occurrence: EU)
  Receive Date: 20250724
  Receipt Date: 20250724
  Transmission Date: 20251020
  Serious: Yes (Death, Other)
  Sender: AZURITY PHARMACEUTICALS
  Company Number: EU-AZURITY PHARMACEUTICALS, INC.-AZR202507-002215

PATIENT
  Age: 53 Year
  Sex: Male

DRUGS (3)
  1. METHYLPREDNISOLONE ACETATE [Suspect]
     Active Substance: METHYLPREDNISOLONE ACETATE
     Indication: Product used for unknown indication
     Route: 065
  2. METHANDROSTENOLONE [Suspect]
     Active Substance: METHANDROSTENOLONE
     Indication: Product used for unknown indication
     Route: 065
  3. SIBUTRAMINE [Suspect]
     Active Substance: SIBUTRAMINE
     Indication: Product used for unknown indication
     Route: 065

REACTIONS (4)
  - Cerebral haemorrhage [Fatal]
  - Arteriovenous malformation [Fatal]
  - Drug abuse [Fatal]
  - Hypertension [Unknown]
